FAERS Safety Report 7788936-5 (Version None)
Quarter: 2011Q3

REPORT INFORMATION
  Report Type: 
  Country: None (occurrence: None)
  Receive Date: 20110930
  Receipt Date: 20110916
  Transmission Date: 20111222
  Serious: Yes (Other)
  Sender: FDA-Public Use
  Company Number: PHEH2011US05450

PATIENT
  Sex: Male

DRUGS (1)
  1. ILARIS [Suspect]
     Indication: AUTOIMMUNE DISORDER
     Dosage: 150 MG, 8 WEEKS
     Dates: start: 20091118

REACTIONS (2)
  - WEIGHT INCREASED [None]
  - ABDOMINAL DISTENSION [None]
